FAERS Safety Report 6321647-1 (Version None)
Quarter: 2009Q3

REPORT INFORMATION
  Report Type: 
  Country: None (occurrence: None)
  Receive Date: 20090824
  Receipt Date: 20090817
  Transmission Date: 20100115
  Serious: Yes (Other)
  Sender: FDA-Public Use
  Company Number: BR-BAYER-200920669LA

PATIENT
  Age: 26 Year
  Sex: Female

DRUGS (1)
  1. MIRENA [Suspect]
     Indication: DRUG USE FOR UNKNOWN INDICATION
     Route: 015
     Dates: start: 20070501

REACTIONS (24)
  - ABDOMINAL DISTENSION [None]
  - ACNE [None]
  - BREAST ENLARGEMENT [None]
  - BREAST PAIN [None]
  - CRYING [None]
  - DYSPAREUNIA [None]
  - FATIGUE [None]
  - FLUID RETENTION [None]
  - FOOD CRAVING [None]
  - HAIR TEXTURE ABNORMAL [None]
  - HOMICIDAL IDEATION [None]
  - INGROWN HAIR [None]
  - IRRITABILITY [None]
  - LOSS OF LIBIDO [None]
  - MALAISE [None]
  - MENSTRUATION IRREGULAR [None]
  - NERVOUSNESS [None]
  - OEDEMA [None]
  - OEDEMA PERIPHERAL [None]
  - ONYCHOCLASIS [None]
  - PEAU D'ORANGE [None]
  - PREMENSTRUAL SYNDROME [None]
  - SWELLING FACE [None]
  - VAGINAL DISCHARGE [None]
